FAERS Safety Report 4369505-6 (Version None)
Quarter: 2004Q2

REPORT INFORMATION
  Report Type: 
  Country: None (occurrence: None)
  Receive Date: 20040603
  Receipt Date: 20040308
  Transmission Date: 20050107
  Serious: Yes (Other)
  Sender: FDA-Public Use
  Company Number: 200410510DE

PATIENT
  Age: 69 Year
  Sex: Male
  Weight: 100 kg

DRUGS (6)
  1. KETEK [Suspect]
     Indication: INFLUENZA
     Route: 048
     Dates: start: 20030218, end: 20030222
  2. NITRENDIPIN [Concomitant]
     Indication: HYPERTENSION
     Route: 048
     Dates: start: 20001201, end: 20030311
  3. FLUIMUCIL LONG [Concomitant]
     Indication: INFLUENZA
     Route: 048
     Dates: start: 20030210, end: 20030219
  4. ESBERITOX [Concomitant]
     Indication: INFLUENZA
     Route: 048
     Dates: start: 20030217, end: 20030301
  5. NAC [Concomitant]
     Indication: INFLUENZA
     Route: 048
     Dates: start: 20030220, end: 20030228
  6. BUDESONID [Concomitant]
     Indication: INFLUENZA
     Route: 055
     Dates: start: 20030307, end: 20030310

REACTIONS (2)
  - APLASTIC ANAEMIA [None]
  - HEADACHE [None]
